FAERS Safety Report 4330393-5 (Version None)
Quarter: 2004Q2

REPORT INFORMATION
  Report Type: 
  Country: None (occurrence: None)
  Receive Date: 20040402
  Receipt Date: 20040325
  Transmission Date: 20050107
  Serious: Yes (Death, Life-Threatening)
  Sender: FDA-Public Use
  Company Number: 200412300US

PATIENT
  Sex: 0

DRUGS (1)
  1. ANZEMET [Suspect]
     Dosage: DOSE: NOT PROVIDED

REACTIONS (1)
  - CARDIAC ARREST [None]
